FAERS Safety Report 18347924 (Version 1)
Quarter: 2020Q4

REPORT INFORMATION
  Report Type: Spontaneous
  Country: US (occurrence: US)
  Receive Date: 20201006
  Receipt Date: 20201006
  Transmission Date: 20210114
  Serious: Yes (Hospitalization)
  Sender: FDA-Public Use
  Company Number: US-ROCHE-2688240

PATIENT
  Age: 40 Year
  Sex: Male

DRUGS (8)
  1. HEMLIBRA [Suspect]
     Active Substance: EMICIZUMAB-KXWH
     Indication: ACQUIRED HAEMOPHILIA
     Dosage: STARTED ON THIS FOR A COUPLE OF WEEKS.  HEMLIBRA STARTED APPROXIMATELY 1 YEAR BEFORE ONSET OF AES.
     Route: 065
  2. HEMLIBRA [Suspect]
     Active Substance: EMICIZUMAB-KXWH
     Dosage: DOSE INCREASED TO 1.5 MG/KG WEEKLY AFTER A COUPLE WEEKS OF 1 MG/KG WEEKLY DOSING
     Route: 065
  3. RITUXAN [Suspect]
     Active Substance: RITUXIMAB
     Indication: IMMUNE ENHANCEMENT THERAPY
     Dosage: THERAPY INITIATED MANY YEARS AGO AND DISCONTINUED MANY YEARS AGO
     Route: 065
  4. RITUXAN [Suspect]
     Active Substance: RITUXIMAB
     Indication: ANTI FACTOR VIII ANTIBODY INCREASED
  5. IMURAN [Concomitant]
     Active Substance: AZATHIOPRINE
     Indication: ANTI FACTOR VIII ANTIBODY INCREASED
  6. CELLCEPT [Suspect]
     Active Substance: MYCOPHENOLATE MOFETIL\MYCOPHENOLATE MOFETIL HYDROCHLORIDE
     Indication: IMMUNE ENHANCEMENT THERAPY
     Dosage: THERAPY INITIATED MANY YEARS AGO AND DISCONTINUED MANY YEARS AGO
     Route: 065
  7. IMURAN [Concomitant]
     Active Substance: AZATHIOPRINE
     Indication: IMMUNE ENHANCEMENT THERAPY
  8. CELLCEPT [Suspect]
     Active Substance: MYCOPHENOLATE MOFETIL\MYCOPHENOLATE MOFETIL HYDROCHLORIDE
     Indication: ANTI FACTOR VIII ANTIBODY INCREASED

REACTIONS (8)
  - Intentional product use issue [Unknown]
  - Off label use [Unknown]
  - Haemorrhage [Unknown]
  - Intestinal ischaemia [Unknown]
  - Thrombosis [Unknown]
  - Diabetic ketoacidosis [Unknown]
  - Anti factor VIII antibody increased [Unknown]
  - Dehydration [Unknown]

NARRATIVE: CASE EVENT DATE: 2019
